FAERS Safety Report 18622555 (Version 1)
Quarter: 2020Q4

REPORT INFORMATION
  Report Type: Spontaneous
  Country: US (occurrence: US)
  Receive Date: 20201215
  Receipt Date: 20201215
  Transmission Date: 20210114
  Serious: Yes (Other)
  Sender: FDA-Public Use
  Company Number: None

PATIENT
  Age: 52 Year
  Sex: Male

DRUGS (1)
  1. PRALUENT [Suspect]
     Active Substance: ALIROCUMAB
     Indication: HYPERCHOLESTEROLAEMIA
     Dosage: ?          OTHER FREQUENCY:150MG EVERY 14 DAY;?
     Route: 058
     Dates: start: 20201210, end: 20201214

REACTIONS (4)
  - Urticaria [None]
  - Psoriasis [None]
  - Condition aggravated [None]
  - Herpes zoster [None]

NARRATIVE: CASE EVENT DATE: 20201214
